FAERS Safety Report 5418510-7 (Version None)
Quarter: 2007Q3

REPORT INFORMATION
  Report Type: 
  Country: None (occurrence: None)
  Receive Date: 20070817
  Receipt Date: 20070802
  Transmission Date: 20080115
  Serious: No
  Sender: FDA-Public Use
  Company Number: US-BOEHRINGER INGELHEIM PHARMACEUTICALS, INC.-2007-BP-18500BP

PATIENT
  Age: 53 Year
  Sex: Female

DRUGS (9)
  1. CATAPRES-TTS-1 [Suspect]
     Indication: HYPERTENSION
     Route: 061
     Dates: start: 20070703
  2. ACIPHEX [Concomitant]
  3. HALCION [Concomitant]
  4. CYMBALTA [Concomitant]
  5. ASPIRIN [Concomitant]
  6. COREG [Concomitant]
  7. NORVASC [Concomitant]
  8. BENICAR [Concomitant]
  9. GLUCOPHAGE [Concomitant]

REACTIONS (1)
  - RASH GENERALISED [None]
